FAERS Safety Report 18505692 (Version 1)
Quarter: 2020Q4

REPORT INFORMATION
  Report Type: Spontaneous
  Country: DE (occurrence: DE)
  Receive Date: 20201116
  Receipt Date: 20201116
  Transmission Date: 20210114
  Serious: Yes (Hospitalization)
  Sender: FDA-Public Use
  Company Number: DE-TEVA-2020-DE-1848459

PATIENT
  Age: 54 Year
  Sex: Male
  Weight: 100 kg

DRUGS (9)
  1. GLIMEPIRID ABZ 3MG [Suspect]
     Active Substance: GLIMEPIRIDE
     Dosage: 1 DOSAGE FORMS DAILY; 3 MG, 0.5-0-0.5-0,
     Route: 048
  2. LEVOTHYROXIN-NATRIUM [Concomitant]
     Active Substance: LEVOTHYROXINE SODIUM
     Dosage: 75 MICROGRAM DAILY; 1-0-0-0,
     Route: 048
  3. METFORMIN [Suspect]
     Active Substance: METFORMIN HYDROCHLORIDE
     Dosage: 2000 MILLIGRAM DAILY; 1-0-1-0,
     Route: 048
  4. PRO VITA D3 OL FORTE [Concomitant]
     Dosage: 5.67 | 1.42 | 220 | 25 | 40 MG / UG, 2-0-0-0,
     Route: 048
  5. ONGLYZA [Suspect]
     Active Substance: SAXAGLIPTIN HYDROCHLORIDE
     Dosage: 5 MILLIGRAM DAILY; 1-0-0-0,
     Route: 048
  6. EISEN-SANDOZ 25 MG [Concomitant]
     Dosage: 25 MILLIGRAM DAILY; 1-0-0-0,
     Route: 048
  7. VITAMIN B-KOMPLEX FORTE HEVERT [Concomitant]
     Dosage: 2 DOSAGE FORMS DAILY; 2-0-0-0,
     Route: 048
  8. SUCONTRAL D DIABETIKER KAPSELN [Suspect]
     Active Substance: DIETARY SUPPLEMENT\HERBALS
     Dosage: 2 DOSAGE FORMS DAILY; 1-0-1-0,
     Route: 048
  9. PRO OMEGA [Concomitant]
     Dosage: 2 DOSAGE FORMS DAILY; 460 | 380 MG, 1-0-1-0,
     Route: 048

REACTIONS (5)
  - Decreased appetite [Unknown]
  - Tachycardia [Unknown]
  - General physical health deterioration [Unknown]
  - Dehydration [Unknown]
  - Dyspnoea [Unknown]
